FAERS Safety Report 16774113 (Version 2)
Quarter: 2019Q3

REPORT INFORMATION
  Report Type: Report from Study
  Country: US (occurrence: US)
  Receive Date: 20190905
  Receipt Date: 20190927
  Transmission Date: 20191005
  Serious: Yes (Other)
  Sender: FDA-Public Use
  Company Number: PHEH2019US036280

PATIENT
  Sex: Male

DRUGS (1)
  1. GILENYA [Suspect]
     Active Substance: FINGOLIMOD HYDROCHLORIDE
     Indication: MULTIPLE SCLEROSIS
     Dosage: 0.5 MG, QD
     Route: 048
     Dates: start: 20171017

REACTIONS (8)
  - Skin disorder [Unknown]
  - Diarrhoea [Unknown]
  - Arthropod sting [Recovered/Resolved]
  - Dysphagia [Unknown]
  - Multiple sclerosis [Not Recovered/Not Resolved]
  - Colitis [Unknown]
  - Decreased immune responsiveness [Unknown]
  - Skin lesion [Recovering/Resolving]
